FAERS Safety Report 15336254 (Version 1)
Quarter: 2018Q3

REPORT INFORMATION
  Report Type: Spontaneous
  Country: US (occurrence: US)
  Receive Date: 20180827
  Receipt Date: 20180827
  Transmission Date: 20181010
  Serious: Yes (Hospitalization)
  Sender: FDA-Public Use
  Company Number: None

PATIENT
  Age: 25 Year
  Sex: Male

DRUGS (11)
  1. PULMOZYME [Suspect]
     Active Substance: DORNASE ALFA
     Indication: CYSTIC FIBROSIS
     Route: 055
     Dates: start: 20170301
  2. CIPROFLOXACIN TAB 750MG [Concomitant]
  3. ADVAIR DISKU AER 500/50 [Concomitant]
  4. GAVILYTE?G SOL [Concomitant]
  5. MINOCYCLINE TAB 100MG [Concomitant]
  6. TRAMADOL HCL TAB 50MG [Concomitant]
  7. TESTOST CYP INJ 200MG/ML [Concomitant]
  8. HYDROCHLOROT CAP 12.5MG [Concomitant]
  9. DRONABINOL CAP 10MG [Concomitant]
  10. ALPRAZOLAM TAB 0.5MG [Concomitant]
  11. NOVOLOG INJ FLEXPEN [Concomitant]

REACTIONS (1)
  - Laboratory test [None]

NARRATIVE: CASE EVENT DATE: 20180823
